FAERS Safety Report 4527572-0 (Version None)
Quarter: 2004Q4

REPORT INFORMATION
  Report Type: 
  Country: None (occurrence: None)
  Receive Date: 20041124
  Receipt Date: 20040923
  Transmission Date: 20050328
  Serious: Yes (Other)
  Sender: FDA-Public Use
  Company Number: 238285

PATIENT
  Age: 74 Year
  Sex: Male
  Weight: 61.2 kg

DRUGS (3)
  1. NOVOLOG MIX 70/30 [Suspect]
     Indication: INSULIN-REQUIRING TYPE II DIABETES MELLITUS
     Dosage: 30 IU, QD, SUBCUTANEOUS
     Route: 058
     Dates: start: 20031230, end: 20040720
  2. NOVOPEN 3 (INSULIN DELIVERY DEVICE) [Concomitant]
  3. NOVOFINE (NEEDLE) [Concomitant]

REACTIONS (5)
  - ABDOMINAL PAIN UPPER [None]
  - ASTHENIA [None]
  - BLOOD GLUCOSE FLUCTUATION [None]
  - DIZZINESS [None]
  - PAIN IN EXTREMITY [None]
